FAERS Safety Report 6992326-2 (Version None)
Quarter: 2010Q3

REPORT INFORMATION
  Report Type: 
  Country: None (occurrence: None)
  Receive Date: 20100917
  Receipt Date: 20100825
  Transmission Date: 20110219
  Serious: Yes (Other)
  Sender: FDA-Public Use
  Company Number: ES-ABBOTT-10P-144-0670974-00

PATIENT
  Age: 31 Year
  Sex: Male

DRUGS (1)
  1. PANTOMYCIN SACHETS [Suspect]
     Indication: ACUTE TONSILLITIS
     Route: 048
     Dates: start: 20100712, end: 20100713

REACTIONS (4)
  - DYSPHAGIA [None]
  - DYSPNOEA [None]
  - LIP OEDEMA [None]
  - OEDEMA PERIPHERAL [None]
